FAERS Safety Report 7903629-9 (Version None)
Quarter: 2011Q4

REPORT INFORMATION
  Report Type: 
  Country: None (occurrence: None)
  Receive Date: 20111109
  Receipt Date: 20111107
  Transmission Date: 20120403
  Serious: Yes (Life-Threatening, Hospitalization)
  Sender: FDA-Public Use
  Company Number: CZ-PFIZER INC-2011262236

PATIENT
  Age: 70 Year
  Sex: Female

DRUGS (18)
  1. TRAMADOL HCL [Suspect]
  2. CITALOPRAM HYDROBROMIDE [Suspect]
  3. TELMISARTAN [Concomitant]
  4. CETIRIZINE [Concomitant]
  5. THEOPHYLLINE [Concomitant]
  6. CODEINE [Suspect]
  7. ATORVASTATIN [Concomitant]
  8. CITALOPRAM [Suspect]
  9. MORPHINE SULFATE [Suspect]
  10. CALCIUM/MINERALS/VITAMIN D [Concomitant]
  11. RILMENIDINE [Concomitant]
  12. METOPROLOL [Concomitant]
  13. DHC [Suspect]
  14. TRIBENOSIDE [Concomitant]
  15. ZOLOFT [Suspect]
  16. BUDESONIDE/FORMOTEROL FUMARATE [Concomitant]
     Route: 055
  17. SERTRALINE HYDROCHLORIDE [Suspect]
  18. NITRENDIPINE [Concomitant]

REACTIONS (22)
  - EXPIRED DRUG ADMINISTERED [None]
  - EYE MOVEMENT DISORDER [None]
  - GENERAL PHYSICAL HEALTH DETERIORATION [None]
  - TRISMUS [None]
  - DEHYDRATION [None]
  - LEUKOCYTOSIS [None]
  - PAIN [None]
  - ANXIETY [None]
  - HYPERGLYCAEMIA [None]
  - AGITATION [None]
  - HYPERCAPNIA [None]
  - SEROTONIN SYNDROME [None]
  - TOXICITY TO VARIOUS AGENTS [None]
  - MUSCLE SPASMS [None]
  - TACHYCARDIA [None]
  - MIOSIS [None]
  - HYPERTENSION [None]
  - OVERDOSE [None]
  - INSOMNIA [None]
  - SCRATCH [None]
  - ASTHENIA [None]
  - RESTLESSNESS [None]
